FAERS Safety Report 14860031 (Version 1)
Quarter: 2018Q2

REPORT INFORMATION
  Report Type: Spontaneous
  Country: US (occurrence: US)
  Receive Date: 20180421
  Receipt Date: 20180421
  Transmission Date: 20180711
  Serious: Yes (Hospitalization)
  Sender: FDA-Public Use
  Company Number: None

PATIENT
  Age: 23 Year
  Sex: Male
  Weight: 76 kg

DRUGS (4)
  1. G-CSF (FILGRASTIM, AMGEN) [Suspect]
     Active Substance: FILGRASTIM
     Dates: end: 20180406
  2. TAXOL [Suspect]
     Active Substance: PACLITAXEL
     Dates: end: 20180404
  3. CISPLATIN. [Suspect]
     Active Substance: CISPLATIN
     Dates: end: 20180407
  4. IFOSFAMIDE. [Suspect]
     Active Substance: IFOSFAMIDE
     Dates: end: 20180407

REACTIONS (5)
  - Haematotoxicity [None]
  - Epistaxis [None]
  - Neutropenia [None]
  - Platelet count decreased [None]
  - Anaemia [None]

NARRATIVE: CASE EVENT DATE: 20180416
